FAERS Safety Report 10445834 (Version 1)
Quarter: 2014Q3

REPORT INFORMATION
  Report Type: Spontaneous
  Country: NL (occurrence: NL)
  Receive Date: 20140910
  Receipt Date: 20140910
  Transmission Date: 20150326
  Serious: Yes (Hospitalization)
  Sender: FDA-Public Use
  Company Number: NL-ASTRAZENECA-2014SE65722

PATIENT
  Age: 29752 Day
  Sex: Female

DRUGS (3)
  1. SIMVASTATINE [Interacting]
     Active Substance: SIMVASTATIN
     Indication: MYOCARDIAL INFARCTION
     Route: 048
     Dates: start: 20140802, end: 20140822
  2. METOPROLOL [Concomitant]
     Active Substance: METOPROLOL
     Indication: MYOCARDIAL INFARCTION
     Route: 048
     Dates: start: 20140802
  3. BRILIQUE [Suspect]
     Active Substance: TICAGRELOR
     Indication: MYOCARDIAL INFARCTION
     Route: 048
     Dates: start: 20140802

REACTIONS (3)
  - Drug interaction [Recovering/Resolving]
  - Muscular weakness [Recovering/Resolving]
  - Blood creatine phosphokinase increased [Unknown]

NARRATIVE: CASE EVENT DATE: 20140822
